FAERS Safety Report 16826796 (Version 1)
Quarter: 2019Q3

REPORT INFORMATION
  Report Type: Report from Study
  Country: JP (occurrence: JP)
  Receive Date: 20190919
  Receipt Date: 20190919
  Transmission Date: 20191005
  Serious: Yes (Other)
  Sender: FDA-Public Use
  Company Number: JP-GILEAD-2019-0427925

PATIENT
  Age: 38 Year
  Sex: Male

DRUGS (2)
  1. KALETRA [Suspect]
     Active Substance: LOPINAVIR\RITONAVIR
     Indication: HIV INFECTION
     Dosage: 2 DOSAGE FORM
     Route: 065
     Dates: start: 20081220
  2. EMTRICITABINE/TENOFOVIR DISOPROXIL FUMARATE [Suspect]
     Active Substance: EMTRICITABINE\TENOFOVIR DISOPROXIL FUMARATE
     Indication: HIV INFECTION
     Dosage: 1 DOSAGE FORM
     Route: 065
     Dates: start: 20081220

REACTIONS (2)
  - Hyperlipidaemia [Not Recovered/Not Resolved]
  - Calculus urinary [Recovering/Resolving]

NARRATIVE: CASE EVENT DATE: 20100501
